FAERS Safety Report 6882733-0 (Version None)
Quarter: 2010Q3

REPORT INFORMATION
  Report Type: 
  Country: None (occurrence: None)
  Receive Date: 20100729
  Receipt Date: 20100625
  Transmission Date: 20110219
  Serious: No
  Sender: FDA-Public Use
  Company Number: US-BAYER-201017579BCC

PATIENT
  Age: 49 Year
  Sex: Male
  Weight: 70 kg

DRUGS (2)
  1. ALEVE [Suspect]
     Indication: GROIN PAIN
     Dosage: TOTAL DAILY DOSE: 220 MG  UNIT DOSE: 220 MG
     Route: 048
     Dates: start: 20100617
  2. ALOPURINOL [Concomitant]
     Route: 065

REACTIONS (5)
  - DEFAECATION URGENCY [None]
  - FATIGUE [None]
  - FREQUENT BOWEL MOVEMENTS [None]
  - GASTROINTESTINAL SOUNDS ABNORMAL [None]
  - SENSATION OF HEAVINESS [None]
